FAERS Safety Report 10799125 (Version 1)
Quarter: 2015Q1

REPORT INFORMATION
  Report Type: Spontaneous
  Country: US (occurrence: US)
  Receive Date: 20150216
  Receipt Date: 20150216
  Transmission Date: 20150721
  Serious: No
  Sender: FDA-Public Use
  Company Number: US-ALLERGAN-1401528US

PATIENT
  Sex: Female

DRUGS (5)
  1. SINGULAIR [Concomitant]
     Active Substance: MONTELUKAST SODIUM
     Indication: PRODUCT USED FOR UNKNOWN INDICATION
  2. ALLEGRA-D [Concomitant]
     Active Substance: FEXOFENADINE\PSEUDOEPHEDRINE
     Indication: PRODUCT USED FOR UNKNOWN INDICATION
     Dosage: UNK UNK, PRN
  3. PRESERVATIVE FREE ARTIFICIAL TEARS [Concomitant]
     Indication: PUNCTATE KERATITIS
  4. RESTASIS [Suspect]
     Active Substance: CYCLOSPORINE
     Indication: DRY EYE
     Dosage: 2 GTT, BID
     Route: 047
     Dates: start: 201312
  5. FML [Concomitant]
     Active Substance: FLUOROMETHOLONE
     Indication: PRODUCT USED FOR UNKNOWN INDICATION

REACTIONS (7)
  - Periorbital haematoma [Recovered/Resolved]
  - Erythema of eyelid [Recovered/Resolved]
  - Punctate keratitis [Recovering/Resolving]
  - Eyelid oedema [Recovered/Resolved]
  - Erythema of eyelid [Unknown]
  - Conjunctival oedema [Recovering/Resolving]
  - Rash erythematous [Unknown]
